FAERS Safety Report 7418438-7 (Version None)
Quarter: 2011Q2

REPORT INFORMATION
  Report Type: 
  Country: None (occurrence: None)
  Receive Date: 20110415
  Receipt Date: 20110412
  Transmission Date: 20111010
  Serious: Yes (Life-Threatening, Hospitalization)
  Sender: FDA-Public Use
  Company Number: DE-BRISTOL-MYERS SQUIBB COMPANY-15670565

PATIENT
  Age: 69 Year
  Sex: Female

DRUGS (3)
  1. CISPLATIN [Suspect]
     Indication: GASTRIC CANCER
     Dosage: RECENT INF:06APR2011
     Route: 042
     Dates: start: 20101208
  2. CETUXIMAB [Suspect]
     Indication: GASTRIC CANCER
     Dosage: RECENT INF:06APR2011 CETUXIMAB 2MG/ML INTRAVENOUS INF
     Route: 042
     Dates: start: 20101208
  3. DOCETAXEL [Suspect]
     Indication: GASTRIC CANCER
     Dosage: RECENT INF:06APR2011
     Route: 042
     Dates: start: 20101208

REACTIONS (2)
  - HYPOCALCAEMIA [None]
  - TETANY [None]
